FAERS Safety Report 15182744 (Version 2)
Quarter: 2018Q3

REPORT INFORMATION
  Report Type: Spontaneous
  Country: US (occurrence: US)
  Receive Date: 20180723
  Receipt Date: 20180803
  Transmission Date: 20181010
  Serious: Yes (Other)
  Sender: FDA-Public Use
  Company Number: US-TEVA-2018-US-930474

PATIENT
  Age: 10 Year
  Sex: Female

DRUGS (11)
  1. ISOFLURANE. [Suspect]
     Active Substance: ISOFLURANE
     Indication: INDUCTION OF ANAESTHESIA
     Dosage: INHALATION; DOSE WAS DECREASED TO 0.4 MAC
     Route: 055
  2. FENTANYL. [Suspect]
     Active Substance: FENTANYL
     Indication: INDUCTION OF ANAESTHESIA
  3. PROPOFOL. [Suspect]
     Active Substance: PROPOFOL
     Indication: MAINTENANCE OF ANAESTHESIA
     Dosage: INHALATION; DOSE WAS KEPT BELOW 120 MICROGRAM/KG/MIN
     Route: 055
  4. PROPOFOL. [Suspect]
     Active Substance: PROPOFOL
     Indication: INDUCTION OF ANAESTHESIA
  5. MAGNESIUM?SULFATE [Suspect]
     Active Substance: MAGNESIUM SULFATE
     Indication: BLOOD PRESSURE FLUCTUATION
     Dosage: BOLUS
     Route: 050
  6. LIDOCAINE. [Concomitant]
     Active Substance: LIDOCAINE
     Indication: INDUCTION OF ANAESTHESIA
     Route: 065
  7. FENTANYL. [Suspect]
     Active Substance: FENTANYL
     Indication: MAINTENANCE OF ANAESTHESIA
     Dosage: INHALATION
     Route: 055
  8. MAGNESIUM?SULFATE [Suspect]
     Active Substance: MAGNESIUM SULFATE
     Indication: CARDIOVASCULAR EVENT PROPHYLAXIS
  9. VECURONIUM [Concomitant]
     Active Substance: VECURONIUM BROMIDE
     Indication: INDUCTION OF ANAESTHESIA
     Route: 065
  10. ISOFLURANE. [Suspect]
     Active Substance: ISOFLURANE
     Indication: MAINTENANCE OF ANAESTHESIA
     Dosage: INHALATION; DOSE WAS KEPT STABLE AT 0.6 MAC (MINIMUM ALVEOLAR CONCENTRATION)
     Route: 055
  11. MIDAZOLAM [Concomitant]
     Active Substance: MIDAZOLAM HYDROCHLORIDE
     Indication: INDUCTION OF ANAESTHESIA
     Route: 065

REACTIONS (1)
  - Transcranial electrical motor evoked potential monitoring abnormal [Recovered/Resolved]
